FAERS Safety Report 12257652 (Version 2)
Quarter: 2016Q2

REPORT INFORMATION
  Report Type: Spontaneous
  Country: JP (occurrence: JP)
  Receive Date: 20160412
  Receipt Date: 20160527
  Transmission Date: 20160815
  Serious: Yes (Other)
  Sender: FDA-Public Use
  Company Number: JP-MALLINCKRODT-T201502523

PATIENT
  Age: 59 Year
  Sex: Male
  Weight: 66 kg

DRUGS (24)
  1. SCOPOLAMINE BUTYLBROMIDE [Concomitant]
     Active Substance: SCOPOLAMINE
     Indication: ANALGESIC THERAPY
     Dosage: 10MG
     Route: 048
  2. KETALAR [Concomitant]
     Active Substance: KETAMINE HYDROCHLORIDE
     Indication: ANALGESIC THERAPY
     Dosage: 8MG
     Route: 051
     Dates: end: 20150421
  3. KETALAR [Concomitant]
     Active Substance: KETAMINE HYDROCHLORIDE
     Dosage: 6MG
     Route: 051
     Dates: start: 20150421, end: 20150423
  4. OXIFAST [Concomitant]
     Active Substance: OXYCODONE
     Dosage: 10-20MG PRN
     Route: 051
     Dates: start: 20150420
  5. DECADRON [Concomitant]
     Active Substance: DEXAMETHASONE
     Dosage: 4MG
     Route: 048
  6. SELBEX [Concomitant]
     Active Substance: TEPRENONE
     Dosage: 150MG
     Route: 048
     Dates: end: 20150421
  7. OXIFAST [Concomitant]
     Active Substance: OXYCODONE
     Dosage: 2MG
     Route: 051
     Dates: start: 20150421, end: 20150421
  8. LYRICA [Concomitant]
     Active Substance: PREGABALIN
     Indication: ANALGESIC THERAPY
     Dosage: 75MG
     Route: 048
     Dates: end: 20150424
  9. OXIFAST [Concomitant]
     Active Substance: OXYCODONE
     Dosage: 4MG
     Route: 051
     Dates: start: 20150421, end: 20150421
  10. SERENACE [Concomitant]
     Active Substance: HALOPERIDOL
     Dosage: 2.5MG
     Route: 051
  11. OXIFAST [Concomitant]
     Active Substance: OXYCODONE
     Indication: ANALGESIC THERAPY
     Dosage: 7.5MG
     Route: 051
     Dates: end: 20150421
  12. ABSTRAL [Concomitant]
     Active Substance: FENTANYL CITRATE
     Indication: ANALGESIC THERAPY
     Dosage: 100MCG PRN
     Route: 060
     Dates: start: 20150426
  13. TAMSULOSIN [Concomitant]
     Active Substance: TAMSULOSIN
     Dosage: 0.2MG
     Route: 048
  14. SEROQUEL [Concomitant]
     Active Substance: QUETIAPINE FUMARATE
     Dosage: 25MG
     Route: 048
  15. RISPERDAL M-TAB [Concomitant]
     Active Substance: RISPERIDONE
     Dosage: 1MG
  16. BFLUID [Concomitant]
     Active Substance: AMINO ACIDS\DEXTROSE\ELECTROLYTES NOS\VITAMINS
     Dosage: 500ML
     Route: 051
     Dates: end: 20150424
  17. PARIET [Concomitant]
     Active Substance: RABEPRAZOLE SODIUM
     Dosage: 10MG
     Route: 048
     Dates: start: 20150427
  18. ARTIST [Concomitant]
     Active Substance: CARVEDILOL
     Dosage: 5MG
     Route: 048
     Dates: end: 20150424
  19. MAGMITT [Concomitant]
     Active Substance: MAGNESIUM OXIDE
     Dosage: 3000MG
     Route: 048
  20. METHADONE [Suspect]
     Active Substance: METHADONE HYDROCHLORIDE
     Indication: CANCER PAIN
     Dosage: 15 MG (45 MG DAILY DOSE)
     Route: 048
     Dates: start: 20150421
  21. METHADONE [Suspect]
     Active Substance: METHADONE HYDROCHLORIDE
     Dosage: 60 MG DAILY DOSE
     Route: 048
     Dates: end: 20150513
  22. FENTOS [Concomitant]
     Active Substance: FENTANYL
     Indication: ANALGESIC THERAPY
     Dosage: 10MG
     Route: 062
     Dates: end: 20150422
  23. LOBU [Concomitant]
     Active Substance: LOBUCAVIR
     Indication: ANALGESIC THERAPY
     Dosage: 180MG
     Route: 048
     Dates: end: 20150424
  24. LYRICA [Concomitant]
     Active Substance: PREGABALIN
     Dosage: 150MG
     Route: 048
     Dates: start: 20150427

REACTIONS (2)
  - Delirium [Not Recovered/Not Resolved]
  - Electrocardiogram QT prolonged [Unknown]

NARRATIVE: CASE EVENT DATE: 20150422
